FAERS Safety Report 18140043 (Version 3)
Quarter: 2020Q4

REPORT INFORMATION
  Report Type: Spontaneous
  Country: US (occurrence: US)
  Receive Date: 20200812
  Receipt Date: 20201008
  Transmission Date: 20210113
  Serious: No
  Sender: FDA-Public Use
  Company Number: US-PFIZER INC-2020310496

PATIENT
  Age: 57 Year
  Sex: Female

DRUGS (1)
  1. IBRANCE [Suspect]
     Active Substance: PALBOCICLIB
     Dosage: 125 MG
     Dates: start: 20190821, end: 20201005

REACTIONS (4)
  - Muscle spasms [Unknown]
  - Movement disorder [Unknown]
  - Hypoaesthesia [Unknown]
  - Neoplasm progression [Unknown]
